FAERS Safety Report 13942083 (Version 1)
Quarter: 2017Q3

REPORT INFORMATION
  Report Type: Spontaneous
  Country: US (occurrence: US)
  Receive Date: 20170907
  Receipt Date: 20170907
  Transmission Date: 20171127
  Serious: Yes (Hospitalization)
  Sender: FDA-Public Use
  Company Number: US-UNITED THERAPEUTICS-UNT-2017-012650

PATIENT
  Age: 43 Year
  Sex: Female
  Weight: 68.27 kg

DRUGS (2)
  1. ADCIRCA [Concomitant]
     Active Substance: TADALAFIL
     Indication: PRODUCT USED FOR UNKNOWN INDICATION
  2. REMODULIN [Suspect]
     Active Substance: TREPROSTINIL
     Indication: PULMONARY ARTERIAL HYPERTENSION
     Dosage: 0.059 ?G/KG, CONTINUING
     Route: 041
     Dates: start: 20160811

REACTIONS (5)
  - Vertigo [Unknown]
  - Sinus congestion [Unknown]
  - Upper-airway cough syndrome [Unknown]
  - Dizziness postural [Unknown]
  - Hypoacusis [Unknown]

NARRATIVE: CASE EVENT DATE: 20170826
